FAERS Safety Report 20103154 (Version 2)
Quarter: 2022Q3

REPORT INFORMATION
  Report Type: Spontaneous
  Country: US (occurrence: None)
  Receive Date: 20211123
  Receipt Date: 20220812
  Transmission Date: 20221027
  Serious: Yes (Hospitalization)
  Sender: FDA-Public Use
  Company Number: 2021A808728

PATIENT
  Age: 70 Year
  Sex: Female

DRUGS (3)
  1. SYMBICORT [Suspect]
     Active Substance: BUDESONIDE\FORMOTEROL FUMARATE DIHYDRATE
     Indication: Chronic obstructive pulmonary disease
     Dosage: 80/4.5 MCG, AS REQUIRED AS REQUIRED
     Route: 055
     Dates: start: 201612, end: 202012
  2. SYMBICORT [Suspect]
     Active Substance: BUDESONIDE\FORMOTEROL FUMARATE DIHYDRATE
     Indication: Chronic obstructive pulmonary disease
     Dosage: TWO INHALATIONS TWICE DAILY (GENERIC) AS REQUIRED
     Route: 055
     Dates: start: 202012, end: 202110
  3. SYMBICORT [Suspect]
     Active Substance: BUDESONIDE\FORMOTEROL FUMARATE DIHYDRATE
     Indication: Chronic obstructive pulmonary disease
     Dosage: TWO INHALATIONS IN THE MORNING AND ONE INHALATION IN THE EVENING AS REQUIRED
     Route: 055
     Dates: start: 202110

REACTIONS (7)
  - Asthenia [Recovering/Resolving]
  - Dyspnoea [Recovered/Resolved]
  - Weight decreased [Not Recovered/Not Resolved]
  - Drug ineffective [Unknown]
  - Drug effect less than expected [Unknown]
  - Inability to afford medication [Unknown]
  - Off label use [Unknown]

NARRATIVE: CASE EVENT DATE: 20200101
